FAERS Safety Report 4488812-X (Version None)
Quarter: 2004Q4

REPORT INFORMATION
  Report Type: 
  Country: None (occurrence: None)
  Receive Date: 20041029
  Receipt Date: 20030605
  Transmission Date: 20050328
  Serious: Yes (Disabling, Other)
  Sender: FDA-Public Use
  Company Number: US-MERCK-0306USA00822

PATIENT
  Age: 55 Year
  Sex: Female
  Weight: 92 kg

DRUGS (5)
  1. VIOXX [Suspect]
     Indication: LOCALISED OSTEOARTHRITIS
     Route: 048
     Dates: start: 20000327
  2. VIOXX [Suspect]
     Route: 048
     Dates: start: 20000803
  3. VIOXX [Suspect]
     Route: 048
     Dates: end: 20000803
  4. LESCOL [Concomitant]
     Indication: HYPERLIPIDAEMIA
     Route: 065
  5. DIAZIDE [Concomitant]
     Route: 065

REACTIONS (7)
  - ADVERSE EVENT [None]
  - BACK PAIN [None]
  - FIBROMYALGIA [None]
  - INTERVERTEBRAL DISC PROTRUSION [None]
  - LOCALISED OSTEOARTHRITIS [None]
  - MUSCULOSKELETAL DISCOMFORT [None]
  - MUSCULOSKELETAL PAIN [None]
